FAERS Safety Report 4902648-4 (Version None)
Quarter: 2006Q1

REPORT INFORMATION
  Report Type: 
  Country: None (occurrence: None)
  Receive Date: 20060207
  Receipt Date: 20060125
  Transmission Date: 20060701
  Serious: Yes (Other)
  Sender: FDA-Public Use
  Company Number: 200417844GDDC

PATIENT
  Age: 46 Year
  Sex: Female
  Weight: 68.2 kg

DRUGS (1)
  1. NICORETTE [Suspect]
     Dosage: 2MG SEE DOSAGE TEXT
     Route: 002
     Dates: start: 19980701

REACTIONS (4)
  - DEPENDENCE [None]
  - MEDICATION ERROR [None]
  - OVERDOSE [None]
  - RESTLESSNESS [None]
